FAERS Safety Report 6616534-5 (Version None)
Quarter: 2010Q1

REPORT INFORMATION
  Report Type: 
  Country: None (occurrence: None)
  Receive Date: 20100305
  Receipt Date: 20100225
  Transmission Date: 20100710
  Serious: Yes (Other)
  Sender: FDA-Public Use
  Company Number: GB-AMGEN-QUU393857

PATIENT
  Sex: Male
  Weight: 60 kg

DRUGS (3)
  1. NPLATE [Suspect]
     Indication: IDIOPATHIC THROMBOCYTOPENIC PURPURA
     Dates: start: 20090101
  2. MYCOPHENOLATE MOFETIL [Concomitant]
     Dates: start: 20090801
  3. IMMU-G [Concomitant]
     Route: 042

REACTIONS (6)
  - CONTUSION [None]
  - DRUG INEFFECTIVE [None]
  - HAEMORRHAGE [None]
  - PLATELET COUNT DECREASED [None]
  - THERAPEUTIC RESPONSE DECREASED [None]
  - THROMBOCYTOPENIA [None]
